FAERS Safety Report 6737825-3 (Version None)
Quarter: 2010Q2

REPORT INFORMATION
  Report Type: 
  Country: None (occurrence: None)
  Receive Date: 20100520
  Receipt Date: 20100517
  Transmission Date: 20101027
  Serious: Yes (Other)
  Sender: FDA-Public Use
  Company Number: 2010SP027495

PATIENT
  Sex: Male

DRUGS (3)
  1. CLARITIN-D 24 HOUR [Suspect]
     Indication: DRUG USE FOR UNKNOWN INDICATION
     Dosage: ONCE; PO
     Route: 048
  2. SINGULAIR [Concomitant]
  3. UROXATRAL [Concomitant]

REACTIONS (1)
  - URINARY TRACT DISORDER [None]
